FAERS Safety Report 9821967 (Version 1)
Quarter: 2014Q1

REPORT INFORMATION
  Report Type: Spontaneous
  Country: CA (occurrence: CA)
  Receive Date: 20140116
  Receipt Date: 20140116
  Transmission Date: 20141002
  Serious: Yes (Life-Threatening)
  Sender: FDA-Public Use
  Company Number: CA-MERCK-1401CAN004820

PATIENT
  Age: 64 Year
  Sex: Male
  Weight: 72.56 kg

DRUGS (9)
  1. EZETROL [Suspect]
     Dosage: 1 DF, QD
     Route: 048
  2. COVERSYL (PERINDOPRIL ARGININE) [Suspect]
     Dosage: 1 DF, QD
     Route: 048
  3. FINASTERIDE [Concomitant]
     Dosage: UNK
     Route: 065
  4. LESCOL [Concomitant]
     Route: 065
  5. NIASPAN [Concomitant]
     Route: 065
  6. RIVASA [Concomitant]
     Route: 065
  7. BISOPROLOL SANDOZ [Concomitant]
     Route: 065
  8. TAMSULOSIN SANDOZ [Concomitant]
     Route: 065
  9. CLONAZEPAM [Concomitant]
     Route: 065

REACTIONS (5)
  - Dyspnoea [Recovered/Resolved]
  - Angioedema [Recovered/Resolved]
  - Pharyngeal oedema [Recovered/Resolved]
  - Pruritus [Recovered/Resolved]
  - Swelling face [Recovered/Resolved]
